FAERS Safety Report 5999708-6 (Version None)
Quarter: 2008Q4

REPORT INFORMATION
  Report Type: 
  Country: None (occurrence: None)
  Receive Date: 20081215
  Receipt Date: 20081204
  Transmission Date: 20090506
  Serious: Yes (Hospitalization)
  Sender: FDA-Public Use
  Company Number: DE-AMGEN-US322884

PATIENT
  Age: 54 Year
  Sex: Female

DRUGS (2)
  1. ENBREL [Suspect]
     Indication: RHEUMATOID ARTHRITIS
     Route: 058
  2. CORTISONE ACETATE TAB [Concomitant]
     Dosage: UNKNOWN
     Route: 048

REACTIONS (2)
  - CARDIAC VALVE DISEASE [None]
  - PULMONARY OEDEMA [None]
